FAERS Safety Report 23260838 (Version 1)
Quarter: 2023Q4

REPORT INFORMATION
  Report Type: Spontaneous
  Country: CA (occurrence: CA)
  Receive Date: 20231205
  Receipt Date: 20231205
  Transmission Date: 20240109
  Serious: Yes (Other)
  Sender: FDA-Public Use
  Company Number: CA-SANDOZ-SDZ2023CA062475

PATIENT
  Age: 7 Year
  Sex: Male

DRUGS (1)
  1. SOMATROPIN [Suspect]
     Active Substance: SOMATROPIN
     Indication: Small for dates baby
     Dosage: 750 UG
     Route: 058

REACTIONS (4)
  - Upper limb fracture [Recovering/Resolving]
  - Fall [Recovering/Resolving]
  - Product storage error [Recovering/Resolving]
  - Product dose omission issue [Recovering/Resolving]
